FAERS Safety Report 24924233 (Version 1)
Quarter: 2025Q1

REPORT INFORMATION
  Report Type: Spontaneous
  Country: CN (occurrence: CN)
  Receive Date: 20250204
  Receipt Date: 20250204
  Transmission Date: 20250409
  Serious: Yes (Hospitalization)
  Sender: NOVARTIS
  Company Number: CN-002147023-NVSC2025CN014351

PATIENT
  Age: 79 Year
  Sex: Male
  Weight: 63.5 kg

DRUGS (2)
  1. SACUBITRIL\VALSARTAN [Suspect]
     Active Substance: SACUBITRIL\VALSARTAN
     Indication: Hypertension
     Dosage: 100 MG, QD
     Route: 048
     Dates: start: 20250101, end: 20250115
  2. SPIRONOLACTONE [Concomitant]
     Active Substance: SPIRONOLACTONE
     Indication: Hypertension
     Dosage: 20 MG, QD
     Route: 048
     Dates: start: 20250101, end: 20250115

REACTIONS (5)
  - Hyperkalaemia [Recovering/Resolving]
  - Nodal rhythm [Unknown]
  - Dizziness [Unknown]
  - Asthenia [Unknown]
  - Heart rate decreased [Recovered/Resolved]

NARRATIVE: CASE EVENT DATE: 20250105
